FAERS Safety Report 24377566 (Version 1)
Quarter: 2024Q3

REPORT INFORMATION
  Report Type: Report from Study
  Country: US (occurrence: US)
  Receive Date: 20240930
  Receipt Date: 20240930
  Transmission Date: 20241017
  Serious: No
  Sender: ACADIA PHARMACEUTICALS
  Company Number: US-ACADIA PHARMACEUTICALS INC.-ACA-2024-PIM-005587

PATIENT
  Sex: Male

DRUGS (2)
  1. NUPLAZID [Suspect]
     Active Substance: PIMAVANSERIN TARTRATE
     Indication: Parkinson^s disease
     Dosage: TAKE 1 CAPSULE BY MOUTH NIGHTLY ON SUNDAY, TUESDAY THRUSDAY AND SATURDAY
     Route: 048
     Dates: start: 202201
  2. NUPLAZID [Suspect]
     Active Substance: PIMAVANSERIN TARTRATE
     Dosage: TAKE 2 CAPSULES NIGHTLY ON MONDAY, WEDNESDAY AND FRIDAY
     Route: 048

REACTIONS (3)
  - Illness [Unknown]
  - Inappropriate schedule of product administration [Unknown]
  - Overdose [Unknown]
